FAERS Safety Report 25426686 (Version 2)
Quarter: 2025Q2

REPORT INFORMATION
  Report Type: Report from Study
  Country: CA (occurrence: CA)
  Receive Date: 20250612
  Receipt Date: 20250620
  Transmission Date: 20250717
  Serious: Yes (Hospitalization, Other)
  Sender: ALEXION PHARMACEUTICALS
  Company Number: CA-AstraZeneca-CH-00886342A

PATIENT

DRUGS (13)
  1. ULTOMIRIS [Suspect]
     Active Substance: RAVULIZUMAB-CWVZ
     Indication: Paroxysmal nocturnal haemoglobinuria
  2. ULTOMIRIS [Suspect]
     Active Substance: RAVULIZUMAB-CWVZ
     Dosage: 3300 MILLIGRAM, Q8W
  3. ULTOMIRIS [Suspect]
     Active Substance: RAVULIZUMAB-CWVZ
     Dosage: 3600 MILLIGRAM, Q8W
  4. SERAX [Concomitant]
     Active Substance: OXAZEPAM
  5. BENADRYL [Concomitant]
     Active Substance: DIPHENHYDRAMINE HYDROCHLORIDE
  6. GRAVOL [Concomitant]
     Active Substance: DIMENHYDRINATE
  7. SENOKOT [Concomitant]
     Active Substance: SENNOSIDES
  8. COLACE [Concomitant]
     Active Substance: DOCUSATE SODIUM
  9. LOVENOX [Concomitant]
     Active Substance: ENOXAPARIN SODIUM
  10. DILAUDID [Concomitant]
     Active Substance: HYDROMORPHONE HYDROCHLORIDE
  11. FAMVIR [Concomitant]
     Active Substance: FAMCICLOVIR
  12. EXJADE [Concomitant]
     Active Substance: DEFERASIROX
  13. CEFADROXIL [Concomitant]
     Active Substance: CEFADROXIL
     Indication: Skin infection
     Dosage: 500 MILLIGRAM, BID
     Route: 065

REACTIONS (5)
  - Gastrointestinal pain [Unknown]
  - Subcutaneous abscess [Unknown]
  - Bronchitis [Unknown]
  - Haemolysis [Not Recovered/Not Resolved]
  - Inappropriate schedule of product administration [Unknown]
